FAERS Safety Report 19465250 (Version 1)
Quarter: 2021Q2

REPORT INFORMATION
  Report Type: Spontaneous
  Country: US (occurrence: US)
  Receive Date: 20210624
  Receipt Date: 20210624
  Transmission Date: 20210717
  Serious: Yes (Hospitalization)
  Sender: FDA-Public Use
  Company Number: US-GILEAD-2021-0537505

PATIENT
  Sex: Female

DRUGS (1)
  1. TRODELVY [Suspect]
     Active Substance: SACITUZUMAB GOVITECAN-HZIY
     Indication: TRIPLE NEGATIVE BREAST CANCER
     Dosage: UNK DOSE, DAY 1 AND DAY 8 OF A 21 DAY CYCLE
     Route: 042

REACTIONS (3)
  - Ill-defined disorder [Unknown]
  - Gait inability [Unknown]
  - Blood calcium decreased [Not Recovered/Not Resolved]
